FAERS Safety Report 9025313 (Version 1)
Quarter: 2013Q1

REPORT INFORMATION
  Report Type: Spontaneous
  Country: US (occurrence: US)
  Receive Date: 20130122
  Receipt Date: 20130122
  Transmission Date: 20140127
  Serious: Yes (Hospitalization)
  Sender: FDA-Public Use
  Company Number: US-MERCK-1301USA001951

PATIENT
  Age: 89 Year
  Sex: Female

DRUGS (5)
  1. SINGULAIR [Suspect]
     Dosage: 1 UNK Q DAY
     Route: 048
  2. TRANSIPEG [Suspect]
     Dosage: 1 UNK Q DAY
     Route: 048
  3. ATARAX (HYDROXYZINE HYDROCHLORIDE) [Suspect]
     Dosage: 25 MG, QD
     Route: 048
  4. AMBROXOL [Suspect]
     Dosage: 60 MG, BID
     Route: 048
  5. LORAZEPAM [Suspect]
     Dosage: 4 MG, QD
     Route: 048

REACTIONS (2)
  - Chorea [Unknown]
  - Aggression [Unknown]
